FAERS Safety Report 6568249-X (Version None)
Quarter: 2010Q1

REPORT INFORMATION
  Report Type: 
  Country: None (occurrence: None)
  Receive Date: 20100203
  Receipt Date: 20100122
  Transmission Date: 20100710
  Serious: Yes (Hospitalization)
  Sender: FDA-Public Use
  Company Number: US-ELI_LILLY_AND_COMPANY-US201001005776

PATIENT
  Sex: Female

DRUGS (20)
  1. FORTEO [Suspect]
     Indication: OSTEOPOROSIS
     Dosage: 20 UG, DAILY (1/D)
     Dates: start: 20090801
  2. NEORAL [Concomitant]
     Indication: PROPHYLAXIS AGAINST TRANSPLANT REJECTION
     Dosage: 100 MG, 2/D
  3. PREDNISONE [Concomitant]
     Dosage: 5 MG, DAILY (1/D)
  4. TRANDATE [Concomitant]
     Dosage: 100 MG, 2/D
  5. IMURAN [Concomitant]
     Dosage: 50 MG, DAILY (1/D)
  6. LIPITOR [Concomitant]
     Dosage: 20 MG, EACH EVENING
  7. TOPAMAX [Concomitant]
     Dosage: 25 MG, EACH MORNING
  8. TOPAMAX [Concomitant]
     Dosage: 125 MG, EACH EVENING
  9. CALAN [Concomitant]
     Dosage: 120 MG, EACH EVENING
  10. HYDROCHLORTHIAZID [Concomitant]
     Dosage: 12.5 MG, TUESDAYS AND THURSDAYS
  11. AMITRIL [Concomitant]
     Dosage: 10 MG, EACH EVENING
  12. WOMEN'S MULTI [Concomitant]
     Dosage: UNK, DAILY (1/D)
  13. CALCIUM [Concomitant]
     Dosage: 1200 MG, 2/D
  14. CALCIUM [Concomitant]
     Dosage: 1200 MG, DAILY (1/D)
  15. ASPIRIN [Concomitant]
     Dosage: 81 MG, TUESDAY AND THURSDAY
  16. ZANAFLEX [Concomitant]
     Dosage: 2 MG, OTHER
  17. LEVAQUIN [Concomitant]
     Indication: CYSTITIS
     Dosage: UNK, AS NEEDED
  18. CIPRO [Concomitant]
     Indication: CYSTITIS
     Dosage: UNK, AS NEEDED
  19. PROMETHAZINE [Concomitant]
     Indication: NAUSEA
     Dosage: 25 MG, AS NEEDED
  20. LORTAB [Concomitant]
     Dosage: 325 D/F, AS NEEDED

REACTIONS (2)
  - DYSPHONIA [None]
  - NEPHROLITHIASIS [None]
